FAERS Safety Report 5763972-9 (Version None)
Quarter: 2008Q2

REPORT INFORMATION
  Report Type: 
  Country: None (occurrence: None)
  Receive Date: 20080606
  Receipt Date: 20080606
  Transmission Date: 20081010
  Serious: Yes (Hospitalization, Other)
  Sender: FDA-Public Use
  Company Number: None

PATIENT
  Sex: Male
  Weight: 60.6 kg

DRUGS (16)
  1. DOCETAXEL [Suspect]
     Indication: PROSTATE CANCER
     Dosage: 75 MG/M2 Q 21 DAYS IV
     Route: 042
     Dates: start: 20080129
  2. LISINOPRIL [Concomitant]
  3. ZOLADEX [Concomitant]
  4. ZOLOFT [Concomitant]
  5. ZOMETA [Concomitant]
  6. MULTI-VITAMIN [Concomitant]
  7. AMBIEN [Concomitant]
  8. NEULASTA [Concomitant]
  9. OXYCODONE HCL [Concomitant]
  10. CORCIDIN D [Concomitant]
  11. GLUCOPHAGE [Concomitant]
  12. IBUROFEN [Concomitant]
  13. ASPIRIN [Concomitant]
  14. PREDNISONE TAB [Concomitant]
  15. DEXAMETHASONE TAB [Concomitant]
  16. DARBAPOETIN ALFA [Concomitant]

REACTIONS (7)
  - DECREASED APPETITE [None]
  - DEHYDRATION [None]
  - DIARRHOEA [None]
  - FATIGUE [None]
  - NAUSEA [None]
  - ORAL INTAKE REDUCED [None]
  - VOMITING [None]
